FAERS Safety Report 9356626 (Version 1)
Quarter: 2013Q2

REPORT INFORMATION
  Report Type: Spontaneous
  Country: US (occurrence: US)
  Receive Date: 20130619
  Receipt Date: 20130619
  Transmission Date: 20140414
  Serious: No
  Sender: FDA-Public Use
  Company Number: US-009507513-1306USA002730

PATIENT
  Sex: Female

DRUGS (2)
  1. COSOPT PF [Suspect]
     Indication: EYE ALLERGY
     Dosage: UNK
     Route: 047
     Dates: start: 20130326
  2. COSOPT PF [Suspect]
     Indication: INTRAOCULAR PRESSURE INCREASED

REACTIONS (4)
  - Eye swelling [Not Recovered/Not Resolved]
  - Dizziness [Not Recovered/Not Resolved]
  - Vision blurred [Not Recovered/Not Resolved]
  - Eye irritation [Not Recovered/Not Resolved]
